FAERS Safety Report 10180786 (Version 2)
Quarter: 2014Q2

REPORT INFORMATION
  Report Type: Spontaneous
  Country: JP (occurrence: JP)
  Receive Date: 20140519
  Receipt Date: 20140519
  Transmission Date: 20141212
  Serious: Yes (Other)
  Sender: FDA-Public Use
  Company Number: JP-TEVA-472375ISR

PATIENT
  Age: 66 Year
  Sex: Male

DRUGS (10)
  1. G-CSF (TEVAGRASTIM/RATIOGRASTIM) [Suspect]
     Indication: NEUTROPENIA
     Dosage: 75 MICROGRAM/M2 DAILY;
     Route: 058
     Dates: start: 20131118, end: 20131128
  2. G-CSF (TEVAGRASTIM/RATIOGRASTIM) [Suspect]
     Dosage: 75 MICROGRAM/M2 DAILY;
     Route: 058
     Dates: start: 20131224, end: 20131226
  3. G-CSF (TEVAGRASTIM/RATIOGRASTIM) [Suspect]
     Dosage: 75 MICROGRAM/M2 DAILY;
     Route: 058
     Dates: start: 20140127, end: 20140131
  4. CARBOPLATIN [Suspect]
     Indication: LUNG NEOPLASM MALIGNANT
     Dosage: 500 MILLIGRAM DAILY;
     Route: 042
     Dates: start: 20131107, end: 20131107
  5. CARBOPLATIN [Suspect]
     Dosage: 350 MILLIGRAM DAILY;
     Route: 042
     Dates: start: 20131206, end: 20140213
  6. TOPOTECIN [Suspect]
     Indication: LUNG NEOPLASM MALIGNANT
     Dosage: 80 MILLIGRAM DAILY;
     Route: 042
     Dates: start: 20131107, end: 20131114
  7. TOPOTECIN [Suspect]
     Dosage: 60 MILLIGRAM DAILY;
     Route: 042
     Dates: start: 20131206, end: 20140219
  8. ASPARA POTASSIUM [Concomitant]
     Indication: HYPOKALAEMIA
     Dosage: 1800 MILLIGRAM DAILY;
     Route: 048
     Dates: start: 20131106
  9. NEXIUM [Concomitant]
     Indication: DUODENAL ULCER
     Dosage: 20 MILLIGRAM DAILY;
     Route: 048
     Dates: start: 201302
  10. LYRICA [Concomitant]
     Indication: NEURALGIA
     Dosage: 150 MILLIGRAM DAILY;
     Route: 048
     Dates: start: 201302

REACTIONS (3)
  - Platelet count decreased [Recovering/Resolving]
  - Pyrexia [Recovered/Resolved]
  - Bronchitis [Recovered/Resolved]
